FAERS Safety Report 6915511-4 (Version None)
Quarter: 2010Q3

REPORT INFORMATION
  Report Type: 
  Country: None (occurrence: None)
  Receive Date: 20100804
  Receipt Date: 20100722
  Transmission Date: 20110219
  Serious: Yes (Hospitalization, Other)
  Sender: FDA-Public Use
  Company Number: 2010PL000084

PATIENT
  Sex: Male

DRUGS (2)
  1. IMURAN [Suspect]
     Indication: CROHN'S DISEASE
     Dates: end: 20091201
  2. TYSABRI [Suspect]
     Indication: CROHN'S DISEASE
     Dosage: IV
     Route: 042
     Dates: start: 20091201

REACTIONS (7)
  - ACNE [None]
  - ARTHRALGIA [None]
  - DRUG INEFFECTIVE [None]
  - FATIGUE [None]
  - INTESTINAL OBSTRUCTION [None]
  - PNEUMONIA [None]
  - THROMBOSIS [None]
